FAERS Safety Report 23884555 (Version 1)
Quarter: 2024Q2

REPORT INFORMATION
  Report Type: Spontaneous
  Country: FR (occurrence: FR)
  Receive Date: 20240522
  Receipt Date: 20240522
  Transmission Date: 20240716
  Serious: Yes (Hospitalization)
  Sender: FDA-Public Use
  Company Number: None

PATIENT
  Age: 36 Year
  Sex: Female
  Weight: 48 kg

DRUGS (4)
  1. LINEZOLID [Suspect]
     Active Substance: LINEZOLID
     Indication: Peritonitis bacterial
     Dosage: 600 MG, 2X/DAY (EVERY 12 HOURS)
     Route: 042
     Dates: start: 20240417, end: 20240422
  2. LEVOFLOXACIN [Suspect]
     Active Substance: LEVOFLOXACIN
     Indication: Peritonitis bacterial
     Dosage: 500 MG, 1X/DAY
     Route: 042
     Dates: start: 20240416
  3. AZTREONAM [Suspect]
     Active Substance: AZTREONAM
     Indication: Peritonitis bacterial
     Dosage: 2000 MG, 3X/DAY (EVERY 8 HOURS)
     Route: 042
     Dates: start: 20240416, end: 20240418
  4. OMEPRAZOLE [Concomitant]
     Active Substance: DONEPEZIL HYDROCHLORIDE\OMEPRAZOLE\OMEPRAZOLE MAGNESIUM
     Dosage: UNK

REACTIONS (2)
  - Cholestatic liver injury [Not Recovered/Not Resolved]
  - Off label use [Unknown]

NARRATIVE: CASE EVENT DATE: 20240417
